FAERS Safety Report 7424442-5 (Version None)
Quarter: 2011Q2

REPORT INFORMATION
  Report Type: 
  Country: None (occurrence: None)
  Receive Date: 20110419
  Receipt Date: 20100727
  Transmission Date: 20111010
  Serious: No
  Sender: FDA-Public Use
  Company Number: US-ABBOTT-10P-163-0661558-00

PATIENT
  Age: 50 Year
  Sex: Female

DRUGS (3)
  1. ZEMPLAR [Suspect]
     Indication: BLOOD PARATHYROID HORMONE INCREASED
     Dosage: INCREASED DOSE
     Route: 042
  2. ZEMPLAR [Suspect]
     Indication: HYPERPARATHYROIDISM
     Dosage: LOWER DOSE
     Route: 042
  3. ZEMPLAR [Suspect]
     Dosage: LOWER DOSE
     Route: 042

REACTIONS (1)
  - GASTROINTESTINAL DISORDER [None]
